FAERS Safety Report 4570531-2 (Version None)
Quarter: 2005Q1

REPORT INFORMATION
  Report Type: 
  Country: None (occurrence: None)
  Receive Date: 20050202
  Receipt Date: 20050119
  Transmission Date: 20050727
  Serious: Yes (Other)
  Sender: FDA-Public Use
  Company Number: WAES 0411GBR00101

PATIENT
  Age: 51 Year
  Sex: Male

DRUGS (4)
  1. VYTORIN [Suspect]
     Indication: AORTIC STENOSIS
     Dosage: 10/40 MG DAILY
     Route: 048
     Dates: start: 20031111
  2. ACETAMINOPHEN (+) DIHYDROCODEINE BITARTRATE [Concomitant]
  3. COD LIVER OIL [Concomitant]
  4. GARLIC EXTRACT [Concomitant]

REACTIONS (4)
  - AMAUROSIS FUGAX [None]
  - TRANSIENT ISCHAEMIC ATTACK [None]
  - TREATMENT NONCOMPLIANCE [None]
  - VENTRICULAR HYPERTROPHY [None]
